FAERS Safety Report 17761713 (Version 1)
Quarter: 2020Q2

REPORT INFORMATION
  Report Type: Spontaneous
  Country: DE (occurrence: DE)
  Receive Date: 20200508
  Receipt Date: 20200508
  Transmission Date: 20200714
  Serious: Yes (Hospitalization, Other)
  Sender: FDA-Public Use
  Company Number: DE-PFIZER INC-2020181607

PATIENT
  Age: 77 Year
  Sex: Male

DRUGS (17)
  1. MYCOPHENOLIC ACID. [Suspect]
     Active Substance: MYCOPHENOLIC ACID
     Dosage: 500 MG, 2X/DAY
  2. CLOPIDOGREL [Concomitant]
     Active Substance: CLOPIDOGREL BISULFATE
     Dosage: 75 MG, 1X/DAY
  3. LACTULOSE. [Suspect]
     Active Substance: LACTULOSE
     Dosage: 3.34 G, AS NEEDED
  4. MAGNESIUM [Concomitant]
     Active Substance: MAGNESIUM
     Dosage: 1 DF, 2X/DAY
  5. CALCIUM HEXAL [Concomitant]
     Active Substance: CALCIUM CARBONATE
     Dosage: 500 MG, 1X/DAY
  6. TORASEMID [Suspect]
     Active Substance: TORSEMIDE
     Dosage: 10 MG, 1X/DAY
  7. ROSUVASTATIN. [Concomitant]
     Active Substance: ROSUVASTATIN
     Dosage: 10 MG, 1X/DAY
  8. PANTOPRAZOL [PANTOPRAZOLE] [Concomitant]
     Active Substance: PANTOPRAZOLE
     Dosage: 40 MG, 1X/DAY
  9. EPLERENONE. [Suspect]
     Active Substance: EPLERENONE
     Dosage: 25 MG, 1X/DAY
  10. SIROLIMUS. [Suspect]
     Active Substance: SIROLIMUS
     Dosage: 0.5 MG, 1X/DAY
  11. KALINOR [POTASSIUM BICARBONATE;POTASSIUM CITRATE] [Concomitant]
     Active Substance: POTASSIUM BICARBONATE\POTASSIUM CITRATE
     Dosage: 1 DF, 2X/DAY
  12. BISOPROLOL [Concomitant]
     Active Substance: BISOPROLOL
     Dosage: 5 MG, 1X/DAY
  13. ALLOPURINOL. [Concomitant]
     Active Substance: ALLOPURINOL
     Dosage: 150 MG, 1X/DAY
  14. MYCOPHENOLIC ACID. [Suspect]
     Active Substance: MYCOPHENOLIC ACID
     Dosage: 250 MG, 2X/DAY
  15. ACETYLSALICYLIC ACID [Concomitant]
     Active Substance: ASPIRIN
     Dosage: 100 MG, 1X/DAY
  16. LEVEMIR [Concomitant]
     Active Substance: INSULIN DETEMIR
     Dosage: 16 DF, 1X/DAY
  17. EZETIMIBE. [Concomitant]
     Active Substance: EZETIMIBE
     Dosage: 10 MG, 1X/DAY

REACTIONS (9)
  - Confusional state [Unknown]
  - Dyspnoea [Unknown]
  - Asthenia [Unknown]
  - General physical health deterioration [Unknown]
  - Alanine aminotransferase increased [Unknown]
  - Aspartate aminotransferase increased [Unknown]
  - Pain [Unknown]
  - Electrolyte imbalance [Unknown]
  - Nausea [Unknown]

NARRATIVE: CASE EVENT DATE: 20191122
